FAERS Safety Report 11624885 (Version 1)
Quarter: 2015Q4

REPORT INFORMATION
  Report Type: Spontaneous
  Country: US (occurrence: US)
  Receive Date: 20151013
  Receipt Date: 20151013
  Transmission Date: 20160304
  Serious: No
  Sender: FDA-Public Use
  Company Number: US-NOVOPROD-457614

PATIENT
  Age: 35 Year
  Sex: Female

DRUGS (3)
  1. PENICILLIN V-K [Suspect]
     Active Substance: PENICILLIN V POTASSIUM
     Indication: TOOTH INFECTION
     Dosage: UNK
     Route: 048
     Dates: start: 20150709
  2. SAXENDA [Suspect]
     Active Substance: LIRAGLUTIDE
     Indication: WEIGHT DECREASED
     Dosage: UNK
     Route: 058
     Dates: start: 20150615
  3. TYLENOL WITH CODEINE [Suspect]
     Active Substance: ACETAMINOPHEN\CODEINE PHOSPHATE
     Indication: DENTAL OPERATION
     Dosage: UNK
     Route: 048
     Dates: start: 20150714, end: 20150714

REACTIONS (4)
  - Injection site pruritus [Not Recovered/Not Resolved]
  - Injection site pain [Not Recovered/Not Resolved]
  - Injection site erythema [Not Recovered/Not Resolved]
  - Injection site urticaria [Not Recovered/Not Resolved]

NARRATIVE: CASE EVENT DATE: 20150711
